FAERS Safety Report 9006718 (Version 1)
Quarter: 2013Q1

REPORT INFORMATION
  Report Type: Spontaneous
  Country: IT (occurrence: IT)
  Receive Date: 20130110
  Receipt Date: 20130110
  Transmission Date: 20140127
  Serious: Yes (Hospitalization)
  Sender: FDA-Public Use
  Company Number: IT-ROCHE-1178107

PATIENT
  Age: 35 Year
  Sex: Female

DRUGS (2)
  1. RIVOTRIL [Suspect]
     Indication: INTENTIONAL OVERDOSE
     Route: 048
     Dates: start: 20121015, end: 20121015
  2. VENLAFAXINE [Suspect]
     Indication: INTENTIONAL OVERDOSE
     Route: 048
     Dates: start: 20121015, end: 20121015

REACTIONS (1)
  - Sopor [Recovered/Resolved]
